FAERS Safety Report 15446353 (Version 6)
Quarter: 2019Q2

REPORT INFORMATION
  Report Type: Report from Study
  Country: ES (occurrence: ES)
  Receive Date: 20180928
  Receipt Date: 20190611
  Transmission Date: 20190711
  Serious: Yes (Hospitalization)
  Sender: FDA-Public Use
  Company Number: ES-PFIZER INC-2018386893

PATIENT
  Age: 77 Year
  Sex: Female
  Weight: 57.3 kg

DRUGS (20)
  1. OXALIPLATIN. [Suspect]
     Active Substance: OXALIPLATIN
     Indication: PANCREATIC CARCINOMA METASTATIC
     Dosage: 132 MG, CYCLIC
     Route: 042
     Dates: start: 20180801, end: 20180801
  2. FENTANYL. [Suspect]
     Active Substance: FENTANYL
     Indication: PAIN
     Dosage: UNK
  3. RANITIDINA [RANITIDINE] [Concomitant]
     Active Substance: RANITIDINE
     Dosage: UNK
     Dates: start: 20180801
  4. SIMVASTATINA [Concomitant]
     Active Substance: SIMVASTATIN
  5. FLUOROURACIL. [Suspect]
     Active Substance: FLUOROURACIL
     Indication: PANCREATIC CARCINOMA METASTATIC
     Dosage: 620 MG, CYCLICAL; IV BOLUS
     Route: 040
     Dates: start: 20180801, end: 20180803
  6. FLUOROURACIL. [Suspect]
     Active Substance: FLUOROURACIL
     Dosage: 3720 MG, CYCLICAL; INTRAVENOUS
     Route: 042
     Dates: start: 20180801, end: 20180803
  7. HIBOR [Concomitant]
     Dosage: UNK
     Dates: start: 20180711
  8. FENTANILO [FENTANYL] [Concomitant]
     Dosage: UNK
     Dates: start: 20180725
  9. OMEPRAZOL [Concomitant]
     Active Substance: OMEPRAZOLE
     Dosage: UNK
     Dates: start: 20180307
  10. ADIRO [Concomitant]
     Active Substance: ASPIRIN
  11. ZYLORIC [Concomitant]
     Active Substance: ALLOPURINOL
  12. METFORMINA [METFORMIN] [Concomitant]
  13. DEXAMETHASONE. [Concomitant]
     Active Substance: DEXAMETHASONE
     Dosage: UNK
     Dates: start: 20180801
  14. PARACETAMOL [Concomitant]
     Active Substance: ACETAMINOPHEN
     Dosage: UNK
     Dates: start: 20180801
  15. FENTANYL. [Suspect]
     Active Substance: FENTANYL
     Dosage: INCREASE TO 50 UG, UNK
     Route: 062
     Dates: start: 20180802
  16. EUTIROX [Concomitant]
     Active Substance: LEVOTHYROXINE SODIUM
  17. CALCIUM FOLINATE [Suspect]
     Active Substance: LEUCOVORIN CALCIUM
     Indication: PANCREATIC CARCINOMA METASTATIC
     Dosage: 620 MG, CYCLIC
     Route: 042
     Dates: start: 20180801, end: 20180801
  18. HYDROCHLOROTHIAZIDE. [Concomitant]
     Active Substance: HYDROCHLOROTHIAZIDE
  19. DEXCLORFENIRAMINA [Concomitant]
     Active Substance: DEXCHLORPHENIRAMINE
     Dosage: UNK
     Dates: start: 20180801
  20. ONDANSETRON [Concomitant]
     Active Substance: ONDANSETRON
     Dosage: UNK
     Dates: start: 20180801

REACTIONS (2)
  - General physical health deterioration [Recovered/Resolved]
  - Vomiting [Recovered/Resolved]

NARRATIVE: CASE EVENT DATE: 20180803
